FAERS Safety Report 8606647-0 (Version None)
Quarter: 2012Q3

REPORT INFORMATION
  Report Type: 
  Country: None (occurrence: None)
  Receive Date: 20120820
  Receipt Date: 20120808
  Transmission Date: 20120928
  Serious: Yes (Hospitalization, Other)
  Sender: FDA-Public Use
  Company Number: FR-PFIZER INC-2012192801

PATIENT
  Age: 80 Year
  Sex: Male

DRUGS (6)
  1. PANTOPRAZOLE [Suspect]
     Indication: PROPHYLAXIS AGAINST GASTROINTESTINAL ULCER
     Dosage: 20 MG, ONE DOSAGE FORM DAILY
     Route: 048
     Dates: start: 20120103, end: 20120117
  2. ASPIRIN [Concomitant]
     Dosage: 75 MG ONCE A DAY
     Route: 048
     Dates: start: 19970101
  3. VALSARTAN [Concomitant]
     Dosage: 80 MG ONCE A DAY
     Route: 048
     Dates: start: 20090101
  4. ATORVASTATIN [Suspect]
     Indication: DYSLIPIDAEMIA
     Dosage: 80 MG, ONE DOSAGE FORM DAILY
     Route: 048
     Dates: start: 20120105, end: 20120117
  5. LOVENOX [Suspect]
     Indication: PROPHYLAXIS
     Dosage: 4000 IU, DAILY
     Route: 058
     Dates: start: 20120102, end: 20120117
  6. PROZAC [Suspect]
     Indication: DEPRESSION
     Dosage: 20 MG, ONE DOSAGE FORM DAILY
     Route: 048
     Dates: start: 20120111, end: 20120117

REACTIONS (3)
  - C-REACTIVE PROTEIN INCREASED [None]
  - LEUKOCYTOSIS [None]
  - RASH MACULO-PAPULAR [None]
